FAERS Safety Report 12849162 (Version 1)
Quarter: 2016Q4

REPORT INFORMATION
  Report Type: Spontaneous
  Country: JP (occurrence: JP)
  Receive Date: 20161014
  Receipt Date: 20161014
  Transmission Date: 20170207
  Serious: Yes (Hospitalization)
  Sender: FDA-Public Use
  Company Number: JP-BAYER-2016-191090

PATIENT
  Age: 52 Year
  Sex: Male
  Weight: 46.89 kg

DRUGS (10)
  1. TAKEPRON [Concomitant]
     Active Substance: LANSOPRAZOLE
     Dosage: 15 MG, QD
  2. ANPLAG [Suspect]
     Active Substance: SARPOGRELATE
     Dosage: 300 MG, QD
  3. PREDONINE [Concomitant]
     Active Substance: PREDNISOLONE\PREDNISOLONE ACETATE\PREDNISOLONE SODIUM SUCCINATE
     Dosage: 12 MG, QD
  4. FOSRENOL [Suspect]
     Active Substance: LANTHANUM CARBONATE
     Dosage: 1250 MG, QD
     Dates: start: 20141127, end: 20141205
  5. CINACALCET HYDROCHLORIDE [Concomitant]
     Active Substance: CINACALCET HYDROCHLORIDE
     Dosage: 25 MG, QD
  6. DIOVAN [Concomitant]
     Active Substance: VALSARTAN
     Dosage: 80 MG, QD
  7. BAYASPIRIN [Suspect]
     Active Substance: ASPIRIN
     Dosage: 100 MG, QD
     Dates: end: 20141216
  8. WARFARIN [Interacting]
     Active Substance: WARFARIN
     Dosage: 1.5 MG, QD
     Dates: end: 20141203
  9. ADALAT CC [Concomitant]
     Active Substance: NIFEDIPINE
     Dosage: 30 MG, QD
  10. FOSRENOL [Suspect]
     Active Substance: LANTHANUM CARBONATE
     Dosage: 1250 MG, QD
     Dates: start: 20141208

REACTIONS (8)
  - Drug administration error [Recovered/Resolved]
  - Intestinal obstruction [Recovered/Resolved]
  - Pneumonia [Unknown]
  - Labelled drug-drug interaction medication error [Recovered/Resolved]
  - Gastrointestinal haemorrhage [Recovered/Resolved]
  - Pulmonary congestion [Unknown]
  - Small intestinal haemorrhage [Recovered/Resolved]
  - Atrial tachycardia [Unknown]

NARRATIVE: CASE EVENT DATE: 20141123
